FAERS Safety Report 9244012 (Version 1)
Quarter: 2013Q1

REPORT INFORMATION
  Report Type: Spontaneous
  Country: US (occurrence: None)
  Receive Date: 20121123
  Receipt Date: 20121123
  Transmission Date: 20140127
  Serious: No
  Sender: FDA-Public Use
  Company Number: 361459

PATIENT
  Age: 69 Year
  Sex: Female

DRUGS (7)
  1. VICTOZA [Suspect]
     Indication: TYPE 2 DIABETES MELLITUS
     Route: 058
     Dates: start: 20120501
  2. METFORMIN (METFORMIN) [Concomitant]
  3. LISINOPRIL (LISINOPRIL) [Concomitant]
  4. SINGULAIR [Concomitant]
  5. LODINE (ETODOLAC) [Concomitant]
  6. ASPIRIN (ACETYLSALICYLIC ACID) [Concomitant]
  7. ALLEGRA [Concomitant]

REACTIONS (3)
  - Dysphonia [None]
  - Increased upper airway secretion [None]
  - Renal pain [None]
